FAERS Safety Report 16308791 (Version 3)
Quarter: 2019Q2

REPORT INFORMATION
  Report Type: Spontaneous
  Country: US (occurrence: US)
  Receive Date: 20190514
  Receipt Date: 20190627
  Transmission Date: 20190711
  Serious: No
  Sender: FDA-Public Use
  Company Number: US-PFIZER INC-2019200254

PATIENT
  Age: 60 Year
  Sex: Female
  Weight: 68 kg

DRUGS (3)
  1. GABAPENTIN. [Suspect]
     Active Substance: GABAPENTIN
     Dosage: 300 MG, 3X/DAY
     Route: 048
  2. LEVOTHYROXINE SODIUM. [Concomitant]
     Active Substance: LEVOTHYROXINE SODIUM
     Dosage: UNK, DAILY (1 TO 2 TABLET)
     Route: 048
     Dates: start: 20180906
  3. GABAPENTIN. [Suspect]
     Active Substance: GABAPENTIN
     Indication: HEADACHE
     Dosage: 1200 MG, 3X/DAY (TWO 600 MG PO THREE TIMES A DAY)
     Route: 048
     Dates: start: 20180518

REACTIONS (9)
  - Dizziness [Unknown]
  - Drug ineffective for unapproved indication [Unknown]
  - Off label use [Unknown]
  - Memory impairment [Unknown]
  - Vision blurred [Unknown]
  - Weight increased [Unknown]
  - Spondylitis [Unknown]
  - Somnolence [Unknown]
  - Diplopia [Unknown]

NARRATIVE: CASE EVENT DATE: 2019
